FAERS Safety Report 16378190 (Version 1)
Quarter: 2019Q2

REPORT INFORMATION
  Report Type: Report from Study
  Country: US (occurrence: US)
  Receive Date: 20190531
  Receipt Date: 20190531
  Transmission Date: 20190711
  Serious: Yes (Disabling)
  Sender: FDA-Public Use
  Company Number: US-ASTRAZENECA-2018SE53855

PATIENT
  Age: 71 Year
  Sex: Female

DRUGS (1)
  1. BYETTA [Suspect]
     Active Substance: EXENATIDE
     Indication: DIABETES MELLITUS
     Dosage: 10.0UG UNKNOWN
     Route: 065

REACTIONS (4)
  - Infection [Unknown]
  - Device malfunction [Unknown]
  - Anger [Unknown]
  - Injury [Unknown]

NARRATIVE: CASE EVENT DATE: 2015
